FAERS Safety Report 23422404 (Version 2)
Quarter: 2024Q1

REPORT INFORMATION
  Report Type: Report from Study
  Country: GB (occurrence: GB)
  Receive Date: 20240119
  Receipt Date: 20240319
  Transmission Date: 20240410
  Serious: Yes (Other)
  Sender: FDA-Public Use
  Company Number: GB-SA-SAC20240117000126

PATIENT
  Sex: Female

DRUGS (1)
  1. PRALUENT [Suspect]
     Active Substance: ALIROCUMAB
     Indication: Type IIa hyperlipidaemia
     Dosage: 150 MG, QOW, SOLUTION FOR INJECTION

REACTIONS (5)
  - Colitis ulcerative [Unknown]
  - COVID-19 [Recovered/Resolved]
  - Viral infection [Recovered/Resolved]
  - Decreased immune responsiveness [Unknown]
  - Asthma [Unknown]
